FAERS Safety Report 18703250 (Version 1)
Quarter: 2021Q1

REPORT INFORMATION
  Report Type: Spontaneous
  Country: US (occurrence: US)
  Receive Date: 20210105
  Receipt Date: 20210105
  Transmission Date: 20210419
  Serious: No
  Sender: FDA-Public Use
  Company Number: US-009507513-2012USA005583

PATIENT
  Age: 61 Year
  Sex: Male

DRUGS (5)
  1. SINEMET [Suspect]
     Active Substance: CARBIDOPA\LEVODOPA
     Indication: PARKINSON^S DISEASE
     Dosage: 20/100 EXTENDED?RELEASE
     Route: 048
  2. SINEMET [Interacting]
     Active Substance: CARBIDOPA\LEVODOPA
     Dosage: 50/200 EXTENDED REALEASE
  3. ARIPIPRAZOLE. [Suspect]
     Active Substance: ARIPIPRAZOLE
  4. ROPINIROLE. [Suspect]
     Active Substance: ROPINIROLE
     Dosage: 8 MILLIGRAM, TID
  5. AMANTADINE. [Suspect]
     Active Substance: AMANTADINE HYDROCHLORIDE
     Dosage: 100 MILLIGRAM, TID

REACTIONS (3)
  - Tremor [Recovering/Resolving]
  - Drug interaction [Unknown]
  - Tic [Recovering/Resolving]
